FAERS Safety Report 14237192 (Version 1)
Quarter: 2017Q4

REPORT INFORMATION
  Report Type: Spontaneous
  Country: TW (occurrence: TW)
  Receive Date: 20171129
  Receipt Date: 20171129
  Transmission Date: 20180321
  Serious: Yes (Other)
  Sender: FDA-Public Use
  Company Number: TW-BAUSCH-BL-2017-032737

PATIENT

DRUGS (1)
  1. MIKELAN LA OPHTHALMIC SOLUTION 1% [Suspect]
     Active Substance: CARTEOLOL HYDROCHLORIDE
     Indication: PRODUCT USED FOR UNKNOWN INDICATION
     Dosage: EYE DROPS, PROLONGED-RELEASE
     Route: 065

REACTIONS (2)
  - Retinal haemorrhage [Unknown]
  - Vitreous adhesions [Unknown]
